FAERS Safety Report 4469270-8 (Version None)
Quarter: 2004Q4

REPORT INFORMATION
  Report Type: 
  Country: None (occurrence: None)
  Receive Date: 20041008
  Receipt Date: 20030818
  Transmission Date: 20050328
  Serious: No
  Sender: FDA-Public Use
  Company Number: US-BRISTOL-MYERS SQUIBB COMPANY-12358669

PATIENT
  Sex: Male
  Weight: 75 kg

DRUGS (4)
  1. AVAPRO [Suspect]
     Indication: HYPERTENSION
     Route: 048
     Dates: start: 20030814, end: 20030815
  2. SYNTHROID [Concomitant]
  3. ASPIRIN [Concomitant]
  4. ACCUPRIL [Concomitant]
     Indication: HYPERTENSION

REACTIONS (1)
  - DYSGEUSIA [None]
